FAERS Safety Report 23150223 (Version 3)
Quarter: 2023Q4

REPORT INFORMATION
  Report Type: Spontaneous
  Country: US (occurrence: US)
  Receive Date: 20231106
  Receipt Date: 20231204
  Transmission Date: 20240110
  Serious: Yes (Death, Other)
  Sender: FDA-Public Use
  Company Number: US-PFIZER INC-202300354087

PATIENT
  Age: 88 Year
  Sex: Male
  Weight: 79.365 kg

DRUGS (1)
  1. VYNDAMAX [Suspect]
     Active Substance: TAFAMIDIS
     Indication: Amyloidosis
     Dosage: 61 MG
     Dates: start: 202310, end: 202310

REACTIONS (9)
  - Cardiac failure [Fatal]
  - Organ failure [Unknown]
  - Pneumonia [Unknown]
  - Dyspepsia [Unknown]
  - Choking [Unknown]
  - Vomiting [Unknown]
  - Skin discolouration [Unknown]
  - Anaemia [Unknown]
  - Dysphagia [Unknown]

NARRATIVE: CASE EVENT DATE: 20231001
